FAERS Safety Report 9055673 (Version 1)
Quarter: 2013Q1

REPORT INFORMATION
  Report Type: Spontaneous
  Country: PT (occurrence: PT)
  Receive Date: 20130206
  Receipt Date: 20130206
  Transmission Date: 20140127
  Serious: Yes (Death, Other)
  Sender: FDA-Public Use
  Company Number: PT-ROCHE-1186776

PATIENT
  Age: 50 Year
  Sex: Female

DRUGS (1)
  1. ROACTEMRA [Suspect]
     Indication: SYSTEMIC SCLEROSIS
     Route: 042
     Dates: start: 201109, end: 201210

REACTIONS (2)
  - Infection [Fatal]
  - Ill-defined disorder [Unknown]
